FAERS Safety Report 16101432 (Version 1)
Quarter: 2019Q1

REPORT INFORMATION
  Report Type: Spontaneous
  Country: NL (occurrence: NL)
  Receive Date: 20190321
  Receipt Date: 20190321
  Transmission Date: 20190418
  Serious: Yes (Hospitalization)
  Sender: FDA-Public Use
  Company Number: NL-ACCORD-113806

PATIENT
  Age: 68 Year
  Sex: Female

DRUGS (11)
  1. PANTOPRAZOLE [Concomitant]
     Active Substance: PANTOPRAZOLE
     Dosage: 1X PER DAY 1 TABLET
     Dates: start: 20180828
  2. MADOPAR [Concomitant]
     Active Substance: BENSERAZIDE HYDROCHLORIDE\LEVODOPA
     Dosage: 1XPER DAY 2CAPS IN THE MORNING, ?1XPER DAY 1CAPS IN THE AFTERNOON,?1XPER DAY 1CAPS IN THE EVENING
     Dates: start: 20160617
  3. CLONAZEPAM. [Concomitant]
     Active Substance: CLONAZEPAM
     Dosage: 1X PER DAY 1 TABLET
     Dates: start: 20160331
  4. MACROGOL/MACROGOL STEARATE [Concomitant]
     Dosage: 1X PER DAY 1 BAG
     Dates: start: 20150709
  5. COLECALCIFEROL [Concomitant]
     Active Substance: CHOLECALCIFEROL
     Dosage: 1X PER DAY 1 TABLET
     Dates: start: 20160922
  6. SYMMETREL [Concomitant]
     Active Substance: AMANTADINE HYDROCHLORIDE
     Dosage: 1X PER DAY 1 TABLET
     Dates: start: 20170414
  7. MADOPAR [Concomitant]
     Active Substance: BENSERAZIDE HYDROCHLORIDE\LEVODOPA
     Dosage: 1X PER DAY 1 TABLET
     Dates: start: 20161208
  8. AMANTADINE. [Concomitant]
     Active Substance: AMANTADINE HYDROCHLORIDE
  9. MELOXICAM. [Concomitant]
     Active Substance: MELOXICAM
     Dosage: 1X PER DAY 1 TABLET
     Dates: start: 20180430
  10. EZETIMIBE. [Suspect]
     Active Substance: EZETIMIBE
     Indication: HYPERCHOLESTEROLAEMIA
     Dosage: 1D1T
     Dates: start: 20180508, end: 20180526
  11. PARACETAMOL [Concomitant]
     Active Substance: ACETAMINOPHEN
     Dosage: 1-4 X PER DAY 1 TABLET
     Dates: start: 20161027

REACTIONS (2)
  - Oedema peripheral [Recovering/Resolving]
  - Dizziness [Recovered/Resolved]

NARRATIVE: CASE EVENT DATE: 20181028
